FAERS Safety Report 4347536-X (Version None)
Quarter: 2004Q2

REPORT INFORMATION
  Report Type: 
  Country: None (occurrence: None)
  Receive Date: 20040422
  Receipt Date: 20040414
  Transmission Date: 20050107
  Serious: Yes (Hospitalization)
  Sender: FDA-Public Use
  Company Number: TPA2004A00450

PATIENT
  Age: 49 Year
  Sex: Female
  Weight: 127.9144 kg

DRUGS (6)
  1. ACTOS [Suspect]
     Indication: DIABETES MELLITUS NON-INSULIN-DEPENDENT
     Dosage: 15 MG, 1 IN 1 D, PER ORAL;  30 MG, 1 IN 1 D, PER ORAL
     Route: 048
     Dates: start: 20010414, end: 20030414
  2. ACTOS [Suspect]
     Indication: DIABETES MELLITUS NON-INSULIN-DEPENDENT
     Dosage: 15 MG, 1 IN 1 D, PER ORAL;  30 MG, 1 IN 1 D, PER ORAL
     Route: 048
     Dates: start: 20030414
  3. AMARYL [Concomitant]
  4. CELEBREX [Concomitant]
  5. WELLBUTRIN [Concomitant]
  6. UNKNOWN ARTHRITIS MEDICATIONS (ALL OTHER THERAPEUTIC PRODUCTS) [Concomitant]

REACTIONS (4)
  - ANEURYSM [None]
  - ARTHRITIS [None]
  - INTRA-ABDOMINAL HAEMORRHAGE [None]
  - SPLENOMEGALY [None]
